FAERS Safety Report 15850223 (Version 1)
Quarter: 2019Q1

REPORT INFORMATION
  Report Type: Spontaneous
  Country: US (occurrence: US)
  Receive Date: 20190121
  Receipt Date: 20190121
  Transmission Date: 20190417
  Serious: No
  Sender: FDA-Public Use
  Company Number: US-PFIZER INC-2019021746

PATIENT
  Age: 14 Year
  Sex: Male

DRUGS (1)
  1. GENOTROPIN [Suspect]
     Active Substance: SOMATROPIN
     Indication: CRANIOPHARYNGIOMA
     Dosage: 1.2 MG, DAILY

REACTIONS (9)
  - Headache [Unknown]
  - Thyroxine free decreased [Unknown]
  - Thyroxine decreased [Unknown]
  - Intentional product misuse [Unknown]
  - Insulin-like growth factor decreased [Unknown]
  - Tri-iodothyronine decreased [Unknown]
  - Bone density decreased [Unknown]
  - Product use in unapproved indication [Unknown]
  - Blood thyroid stimulating hormone decreased [Unknown]

NARRATIVE: CASE EVENT DATE: 20181015
